FAERS Safety Report 7546536-6 (Version None)
Quarter: 2011Q2

REPORT INFORMATION
  Report Type: 
  Country: None (occurrence: None)
  Receive Date: 20110614
  Receipt Date: 20110523
  Transmission Date: 20111010
  Serious: Yes (Hospitalization, Other)
  Sender: FDA-Public Use
  Company Number: US-BAYER-201038521NA

PATIENT
  Age: 30 Year
  Sex: Female
  Weight: 114.74 kg

DRUGS (2)
  1. YAZ [Suspect]
     Indication: CONTRACEPTION
     Dosage: UNK UNK, QD
     Route: 048
     Dates: start: 20070101, end: 20081001
  2. LABETALOL HCL [Concomitant]
     Dosage: 100 MG, BID

REACTIONS (4)
  - CHOLECYSTITIS CHRONIC [None]
  - GALLBLADDER DISORDER [None]
  - PAIN [None]
  - BILE DUCT STONE [None]
